FAERS Safety Report 15781219 (Version 1)
Quarter: 2019Q1

REPORT INFORMATION
  Report Type: Spontaneous
  Country: KR (occurrence: KR)
  Receive Date: 20190102
  Receipt Date: 20190102
  Transmission Date: 20190417
  Serious: Yes (Hospitalization)
  Sender: FDA-Public Use
  Company Number: KR-SA-2018SA396996

PATIENT
  Age: 57 Year
  Sex: Male

DRUGS (4)
  1. TAXOTERE [Suspect]
     Active Substance: DOCETAXEL
     Dosage: 1.71/40 MG/M2 BI WEEKLY
     Route: 042
     Dates: start: 20181219, end: 20181219
  2. TAXOTERE [Suspect]
     Active Substance: DOCETAXEL
     Indication: PROSTATE CANCER
     Dosage: 1.71/40 MG/M2 BI WEEKLY
     Route: 042
     Dates: start: 20181123, end: 20181123
  3. TRIPTORELIN [Suspect]
     Active Substance: TRIPTORELIN
     Indication: PROSTATE CANCER
     Dosage: 11.25 MG, Q3M
     Route: 058
     Dates: start: 20181115, end: 20181115
  4. TAXOTERE [Suspect]
     Active Substance: DOCETAXEL
     Dosage: 1.71/40 MG/M2 BI WEEKLY
     Route: 042
     Dates: start: 20181206, end: 20181206

REACTIONS (4)
  - Abdominal pain upper [Recovered/Resolved]
  - Appendicitis [Recovered/Resolved]
  - Abdominal pain lower [Recovered/Resolved]
  - Vomiting [Recovered/Resolved]

NARRATIVE: CASE EVENT DATE: 20181224
